FAERS Safety Report 6210616-8 (Version None)
Quarter: 2009Q2

REPORT INFORMATION
  Report Type: 
  Country: None (occurrence: None)
  Receive Date: 20090529
  Receipt Date: 20090529
  Transmission Date: 20091009
  Serious: Yes (Hospitalization)
  Sender: FDA-Public Use
  Company Number: None

PATIENT
  Age: 55 Year
  Sex: Male
  Weight: 128.8216 kg

DRUGS (2)
  1. VARENICLINE 1MG [Suspect]
     Indication: SMOKING CESSATION THERAPY
     Dosage: 1MG TWICE A DAY PO
     Route: 048
     Dates: start: 20081202, end: 20090324
  2. CHANTIX [Concomitant]

REACTIONS (1)
  - PULMONARY EMBOLISM [None]
